FAERS Safety Report 9264482 (Version 2)
Quarter: 2013Q2

REPORT INFORMATION
  Report Type: Report from Study
  Country: US (occurrence: US)
  Receive Date: 20130501
  Receipt Date: 20130507
  Transmission Date: 20140414
  Serious: Yes (Death)
  Sender: FDA-Public Use
  Company Number: US-ROCHE-1220240

PATIENT
  Age: 49 Year
  Sex: Female
  Weight: 60.38 kg

DRUGS (4)
  1. PEGASYS [Suspect]
     Indication: HEPATITIS
     Route: 058
     Dates: start: 20130313
  2. RIBASPHERE [Suspect]
     Indication: HEPATITIS
     Route: 048
     Dates: start: 20130313
  3. INCIVEK [Suspect]
     Indication: HEPATITIS
     Route: 048
     Dates: start: 20130313
  4. PHENERGAN [Concomitant]
     Route: 048
     Dates: start: 20130313

REACTIONS (5)
  - Multi-organ failure [Fatal]
  - Septic shock [Fatal]
  - Intestinal ischaemia [Fatal]
  - Hyperkalaemia [Fatal]
  - Pneumonia [Fatal]
